FAERS Safety Report 13226143 (Version 2)
Quarter: 2017Q1

REPORT INFORMATION
  Report Type: Spontaneous
  Country: ES (occurrence: ES)
  Receive Date: 20170213
  Receipt Date: 20170227
  Transmission Date: 20170428
  Serious: Yes (Other)
  Sender: FDA-Public Use
  Company Number: ES-IPSEN BIOPHARMACEUTICALS, INC.-2017-01123

PATIENT

DRUGS (1)
  1. SANDOSTATIN [Suspect]
     Active Substance: OCTREOTIDE ACETATE
     Indication: ACROMEGALY
     Dosage: NOT REPORTED
     Route: 065

REACTIONS (1)
  - Cholestasis [Unknown]
